FAERS Safety Report 20954097 (Version 2)
Quarter: 2022Q3

REPORT INFORMATION
  Report Type: Spontaneous
  Country: US (occurrence: US)
  Receive Date: 20220614
  Receipt Date: 20220623
  Transmission Date: 20221026
  Serious: No
  Sender: FDA-Public Use
  Company Number: US-NOVARTISTESTPH-NVSC2022US135829

PATIENT

DRUGS (2)
  1. PATADAY [Suspect]
     Active Substance: OLOPATADINE HYDROCHLORIDE
     Indication: Seasonal allergy
     Dosage: UNK, (OLOPATADINE HCL 0.7 PERCENT)
     Route: 047
  2. PATADAY [Suspect]
     Active Substance: OLOPATADINE HYDROCHLORIDE
     Dosage: UNK, (ALLERGIC AISLE, OLOPATADINE HCL 0.2 PERCENT)
     Route: 065

REACTIONS (4)
  - Blepharitis [Unknown]
  - Eyelid margin crusting [Unknown]
  - Erythema of eyelid [Unknown]
  - Eye disorder [Unknown]
